FAERS Safety Report 9198583 (Version 1)
Quarter: 2013Q1

REPORT INFORMATION
  Report Type: Spontaneous
  Country: US (occurrence: None)
  Receive Date: 20130327
  Receipt Date: 20130327
  Transmission Date: 20140127
  Serious: Yes (Death, Other)
  Sender: FDA-Public Use
  Company Number: AUR-APL-2013-02603

PATIENT
  Sex: Female

DRUGS (5)
  1. ZIDOVUDINE [Suspect]
     Indication: ANTIRETROVIRAL THERAPY
  2. NEVIRAPINE [Suspect]
  3. ABACAVIR [Suspect]
  4. STAVUDINE [Suspect]
  5. LAMIVUDINE [Suspect]

REACTIONS (18)
  - Metabolic acidosis [None]
  - Fanconi syndrome [None]
  - Hepatotoxicity [None]
  - Anaemia [None]
  - Dyspnoea [None]
  - Asthenia [None]
  - Constipation [None]
  - Vomiting [None]
  - Blood pressure systolic increased [None]
  - Heart rate increased [None]
  - Oxygen saturation decreased [None]
  - Hypokalaemia [None]
  - Hypophosphataemia [None]
  - Blood lactate dehydrogenase increased [None]
  - Proteinuria [None]
  - Hepatic steatosis [None]
  - Renal disorder [None]
  - Polyuria [None]
